FAERS Safety Report 7200053-1 (Version None)
Quarter: 2010Q4

REPORT INFORMATION
  Report Type: 
  Country: None (occurrence: None)
  Receive Date: 20101228
  Receipt Date: 20101221
  Transmission Date: 20110411
  Serious: Yes (Death, Other)
  Sender: FDA-Public Use
  Company Number: NL-TEVA-260759ISR

PATIENT
  Sex: Male

DRUGS (2)
  1. CISPLATIN [Suspect]
     Indication: NON-SMALL CELL LUNG CANCER
     Dosage: 5 X 11MG/WEEK
     Dates: start: 20101012, end: 20101111
  2. CETUXIMAB [Suspect]
     Dates: start: 20101005, end: 20101111

REACTIONS (3)
  - DEATH [None]
  - ILEUS PARALYTIC [None]
  - MULTI-ORGAN FAILURE [None]
